FAERS Safety Report 16856274 (Version 5)
Quarter: 2020Q2

REPORT INFORMATION
  Report Type: Spontaneous
  Country: US (occurrence: US)
  Receive Date: 20190926
  Receipt Date: 20200429
  Transmission Date: 20200713
  Serious: Yes (Other)
  Sender: FDA-Public Use
  Company Number: US-PFIZER INC-2019414638

PATIENT
  Age: 76 Year
  Sex: Female

DRUGS (10)
  1. NORVASC [Concomitant]
     Active Substance: AMLODIPINE BESYLATE
     Indication: HYPERTENSION
     Dosage: 5 MG, ONCE DAILY
     Dates: start: 20181207
  2. XELJANZ [Suspect]
     Active Substance: TOFACITINIB CITRATE
     Indication: RHEUMATOID ARTHRITIS
     Dosage: 5 MG, ONCE DAILY
     Dates: start: 20190616
  3. MEDROL [Concomitant]
     Active Substance: METHYLPREDNISOLONE
     Indication: PAIN
  4. FLONASE ALLERGY RELIEF [Concomitant]
     Active Substance: FLUTICASONE PROPIONATE
     Indication: HYPERSENSITIVITY
     Dosage: 2 SPRAYS, AS NEEDED
     Dates: start: 2018
  5. TYLENOL [Concomitant]
     Active Substance: ACETAMINOPHEN
     Indication: PAIN
     Dosage: 2 DF, ONCE DAILY
     Dates: start: 2015
  6. BENAZEPRIL HCL [Concomitant]
     Active Substance: BENAZEPRIL HYDROCHLORIDE
     Indication: HYPERTENSION
     Dosage: 20 MG, DAILY
     Dates: start: 20130602
  7. LOPRESSOR [Concomitant]
     Active Substance: METOPROLOL TARTRATE
     Indication: HYPERTENSION
     Dosage: 25 MG, TWICE DAILY
     Dates: start: 201504
  8. MEDROL [Concomitant]
     Active Substance: METHYLPREDNISOLONE
     Indication: RHEUMATOID ARTHRITIS
     Dosage: 4 MG, ONCE DAILY
     Dates: start: 2016
  9. BENADRYL [Concomitant]
     Active Substance: DIPHENHYDRAMINE HYDROCHLORIDE
     Indication: HYPERSENSITIVITY
     Dosage: 25 MG, ONCE DAILY
     Dates: start: 2017
  10. ZYRTEC [Concomitant]
     Active Substance: CETIRIZINE HYDROCHLORIDE
     Indication: HYPERSENSITIVITY
     Dosage: UNK, AS NEEDED (ONCE DAILY)
     Dates: start: 2017

REACTIONS (2)
  - Renal impairment [Not Recovered/Not Resolved]
  - Infection [Unknown]
